FAERS Safety Report 7644352-8 (Version None)
Quarter: 2011Q3

REPORT INFORMATION
  Report Type: 
  Country: None (occurrence: None)
  Receive Date: 20110729
  Receipt Date: 20110720
  Transmission Date: 20111222
  Serious: Yes (Other)
  Sender: FDA-Public Use
  Company Number: US-ELI_LILLY_AND_COMPANY-US201002003684

PATIENT
  Sex: Female
  Weight: 99.773 kg

DRUGS (16)
  1. ASCORBIC ACID [Concomitant]
     Dosage: 1000 MG, QD
  2. COZAAR [Concomitant]
     Dosage: 50 MG, QD
  3. LOVASTATIN [Concomitant]
     Dosage: 20 MG, QD
  4. XANAX [Concomitant]
     Dosage: 1 MG, QD
  5. CARAFATE [Concomitant]
     Dosage: 4 G, QD
  6. METFORMIN HCL [Concomitant]
     Dosage: 1000 MG, TID
  7. METFORMIN HCL [Concomitant]
     Dosage: 1000 MG, BID
  8. MEVACOR [Concomitant]
     Dosage: 20 MG, QD
  9. TRAZODONE HCL [Concomitant]
     Dosage: 250 MG, EACH EVENING
  10. PANGESTYME [Concomitant]
     Dosage: 20 UNK, UNK
  11. CELEXA [Concomitant]
     Dosage: 40 MG, QD
  12. MULTI-VITAMIN [Concomitant]
     Dosage: UNK, QD
  13. PREVACID [Concomitant]
     Dosage: UNK
     Dates: end: 20071015
  14. GEMFIBROZIL [Concomitant]
     Dosage: 600 MG, BID
  15. BYETTA [Suspect]
     Dosage: UNK, UNKNOWN
     Route: 065
     Dates: start: 20060101, end: 20071025
  16. CREON [Concomitant]
     Dosage: 120 MG, QD

REACTIONS (6)
  - DIARRHOEA [None]
  - ABDOMINAL DISTENSION [None]
  - PANCREATIC CARCINOMA [None]
  - BLOOD GLUCOSE ABNORMAL [None]
  - ABDOMINAL PAIN UPPER [None]
  - PANCREATITIS [None]
